FAERS Safety Report 11539345 (Version 2)
Quarter: 2016Q1

REPORT INFORMATION
  Report Type: Report from Study
  Country: GB (occurrence: GB)
  Receive Date: 20150923
  Receipt Date: 20160218
  Transmission Date: 20160525
  Serious: Yes (Hospitalization, Other)
  Sender: FDA-Public Use
  Company Number: GB-ABBVIE-15K-167-1466151-00

PATIENT
  Age: 42 Year
  Sex: Male

DRUGS (2)
  1. HUMIRA [Suspect]
     Active Substance: ADALIMUMAB
     Indication: ANKYLOSING SPONDYLITIS
     Route: 058
     Dates: start: 20111003, end: 20150624
  2. HUMIRA [Suspect]
     Active Substance: ADALIMUMAB
     Route: 058
     Dates: start: 20150724

REACTIONS (4)
  - Dyspnoea [Unknown]
  - Cardiac disorder [Unknown]
  - Ventricular tachycardia [Unknown]
  - Chest pain [Unknown]

NARRATIVE: CASE EVENT DATE: 20150624
